FAERS Safety Report 10651349 (Version 3)
Quarter: 2015Q1

REPORT INFORMATION
  Report Type: Report from Study
  Country: TR (occurrence: TR)
  Receive Date: 20141215
  Receipt Date: 20150305
  Transmission Date: 20150720
  Serious: Yes (Other)
  Sender: FDA-Public Use
  Company Number: PHHY2014TR158818

PATIENT
  Age: 74 Year
  Sex: Male

DRUGS (1)
  1. SANDOSTATIN LAR DEPOT [Suspect]
     Active Substance: OCTREOTIDE ACETATE
     Indication: ACROMEGALY
     Dosage: 30 MG, EVERY 28 DAYS
     Route: 030
     Dates: start: 20050723

REACTIONS (6)
  - Product quality issue [Unknown]
  - Needle issue [Unknown]
  - Rib fracture [Unknown]
  - Incorrect dose administered [Unknown]
  - Fall [Unknown]
  - Musculoskeletal pain [Unknown]

NARRATIVE: CASE EVENT DATE: 20141121
